FAERS Safety Report 24915911 (Version 2)
Quarter: 2025Q1

REPORT INFORMATION
  Report Type: Spontaneous
  Country: JP (occurrence: JP)
  Receive Date: 20250203
  Receipt Date: 20250303
  Transmission Date: 20250409
  Serious: Yes (Death, Other)
  Sender: CHEPLAPHARM
  Company Number: JP-CHEPLA-2025001286

PATIENT
  Age: 3 Month
  Sex: Female

DRUGS (13)
  1. GANCICLOVIR [Suspect]
     Active Substance: GANCICLOVIR
     Indication: Pneumonia cytomegaloviral
     Dosage: DAILY DOSE: 10 MILLIGRAM/KG
     Route: 042
  2. GANCICLOVIR [Suspect]
     Active Substance: GANCICLOVIR
     Indication: Pneumonia cytomegaloviral
     Route: 042
  3. FOSCARNET [Suspect]
     Active Substance: FOSCARNET
     Indication: Pneumonia cytomegaloviral
     Dosage: DAILY DOSE: 180 MILLIGRAM/KG
  4. FOSCARNET [Suspect]
     Active Substance: FOSCARNET
     Indication: Drug resistance
     Dosage: DAILY DOSE: 180 MILLIGRAM/KG
  5. FOSCARNET [Suspect]
     Active Substance: FOSCARNET
     Indication: Antiviral prophylaxis
     Dosage: DAILY DOSE: 180 MILLIGRAM/KG
  6. FOSCARNET [Suspect]
     Active Substance: FOSCARNET
     Indication: Pneumonia cytomegaloviral
     Dosage: THERAPY CONTINUED?DAILY DOSE: 120 MILLIGRAM/KG
  7. FOSCARNET [Suspect]
     Active Substance: FOSCARNET
     Indication: Drug resistance
     Dosage: THERAPY CONTINUED?DAILY DOSE: 120 MILLIGRAM/KG
  8. FOSCARNET [Suspect]
     Active Substance: FOSCARNET
     Indication: Antiviral prophylaxis
     Dosage: THERAPY CONTINUED?DAILY DOSE: 120 MILLIGRAM/KG
  9. LEFLUNOMIDE [Suspect]
     Active Substance: LEFLUNOMIDE
     Indication: Pneumonia cytomegaloviral
     Dosage: DAILY DOSE: 5 MILLIGRAM/KG
  10. ARTESUNATE [Suspect]
     Active Substance: ARTESUNATE
     Indication: Pneumonia cytomegaloviral
     Dosage: DAILY DOSE: 20 MILLIGRAM/KG
  11. LETERMOVIR [Suspect]
     Active Substance: LETERMOVIR
     Indication: Pneumonia cytomegaloviral
  12. CIDOFOVIR [Suspect]
     Active Substance: CIDOFOVIR
     Indication: Drug hypersensitivity
  13. CIDOFOVIR [Suspect]
     Active Substance: CIDOFOVIR
     Indication: Pneumonia cytomegaloviral

REACTIONS (4)
  - Pulmonary haemorrhage [Fatal]
  - Idiopathic interstitial pneumonia [Unknown]
  - Drug resistance [Unknown]
  - Off label use [Recovered/Resolved]
